FAERS Safety Report 11247992 (Version 1)
Quarter: 2015Q3

REPORT INFORMATION
  Report Type: Spontaneous
  Country: DK (occurrence: FR)
  Receive Date: 20150708
  Receipt Date: 20150708
  Transmission Date: 20151125
  Serious: Yes (Hospitalization)
  Sender: FDA-Public Use
  Company Number: FR-FRI-1000077968

PATIENT
  Age: 61 Year
  Sex: Male

DRUGS (5)
  1. ARTANE [Suspect]
     Active Substance: TRIHEXYPHENIDYL HYDROCHLORIDE
     Indication: PRODUCT USED FOR UNKNOWN INDICATION
     Dosage: 6 MG
     Route: 048
     Dates: end: 20150209
  2. RISPERDAL [Concomitant]
     Active Substance: RISPERIDONE
     Indication: PRODUCT USED FOR UNKNOWN INDICATION
     Dosage: 1 MG
     Route: 048
     Dates: start: 20150206, end: 20150209
  3. IMOVANE [Suspect]
     Active Substance: ZOPICLONE
     Indication: PRODUCT USED FOR UNKNOWN INDICATION
     Dosage: 1 DOSAGE FORM
     Route: 048
     Dates: end: 20150209
  4. LAMICTAL [Suspect]
     Active Substance: LAMOTRIGINE
     Indication: PRODUCT USED FOR UNKNOWN INDICATION
     Dosage: 50 MG
     Route: 048
     Dates: end: 20150209
  5. ESCITALOPRAM [Suspect]
     Active Substance: ESCITALOPRAM OXALATE
     Indication: PRODUCT USED FOR UNKNOWN INDICATION
     Dosage: 10 MG
     Route: 048

REACTIONS (5)
  - Disorganised speech [Recovered/Resolved]
  - Logorrhoea [Recovered/Resolved]
  - Echolalia [Recovered/Resolved]
  - Masked facies [Recovered/Resolved]
  - Staring [Recovered/Resolved]

NARRATIVE: CASE EVENT DATE: 201502
